FAERS Safety Report 13746816 (Version 1)
Quarter: 2017Q3

REPORT INFORMATION
  Report Type: Spontaneous
  Country: CN (occurrence: CN)
  Receive Date: 20170712
  Receipt Date: 20170712
  Transmission Date: 20171127
  Serious: Yes (Hospitalization, Disabling, Other)
  Sender: FDA-Public Use
  Company Number: CN-FRESENIUS KABI-FK201705889

PATIENT
  Age: 31 Year
  Sex: Female
  Weight: 55 kg

DRUGS (4)
  1. DEZOCINE [Suspect]
     Active Substance: DEZOCINE
     Indication: ANAESTHESIA
     Route: 041
     Dates: start: 20170426, end: 20170426
  2. PROPOFOL LCT/MCT 10 MG/ML FRESENIUS [Suspect]
     Active Substance: PROPOFOL
     Indication: ANAESTHESIA
     Route: 041
     Dates: start: 20170426, end: 20170426
  3. TOBRAMYCIN AND DEXAMETHASONE [Suspect]
     Active Substance: DEXAMETHASONE\TOBRAMYCIN
     Indication: EYE DISORDER
     Dates: start: 20170426, end: 20170426
  4. OXYTOCIN. [Suspect]
     Active Substance: OXYTOCIN
     Indication: ABORTION INDUCED
     Route: 030
     Dates: start: 20170426, end: 20170426

REACTIONS (7)
  - Dizziness [Recovered/Resolved with Sequelae]
  - Vomiting [Recovered/Resolved with Sequelae]
  - Anaphylactoid reaction [Recovered/Resolved with Sequelae]
  - Headache [Recovered/Resolved with Sequelae]
  - Tinnitus [Recovered/Resolved with Sequelae]
  - Nausea [Recovered/Resolved with Sequelae]
  - Hypoacusis [Recovered/Resolved with Sequelae]

NARRATIVE: CASE EVENT DATE: 20170426
